FAERS Safety Report 8790080 (Version 1)
Quarter: 2012Q4

REPORT INFORMATION
  Report Type: 
  Country: US (occurrence: US)
  Receive Date: 20120917
  Receipt Date: 20120917
  Transmission Date: 20130627
  Serious: Yes (Other)
  Sender: FDA-Public Use
  Company Number: US-PFIZER INC-2012228436

PATIENT
  Age: 60 Year
  Sex: Female
  Weight: 110 kg

DRUGS (4)
  1. LIPITOR [Suspect]
     Indication: BLOOD CHOLESTEROL INCREASED
     Dosage: 20 mg, daily
  2. METOPROLOL [Concomitant]
     Indication: HYPERTENSION
     Dosage: 50 mg, daily
  3. NORCO [Concomitant]
     Indication: PAIN
     Dosage: 10/325 mg, 4x/day
  4. PROMETHAZINE [Concomitant]
     Indication: NAUSEA
     Dosage: 25 mg, every 4 hrs

REACTIONS (1)
  - Lymphoma [Recovered/Resolved]
